FAERS Safety Report 12113668 (Version 3)
Quarter: 2019Q4

REPORT INFORMATION
  Report Type: Report from Study
  Country: IT (occurrence: IT)
  Receive Date: 20160225
  Receipt Date: 20191020
  Transmission Date: 20200122
  Serious: Yes (Other)
  Sender: FDA-Public Use
  Company Number: PHHY2014IT113272

PATIENT
  Age: 41 Year
  Sex: Female

DRUGS (1)
  1. GILENYA [Suspect]
     Active Substance: FINGOLIMOD HYDROCHLORIDE
     Indication: MULTIPLE SCLEROSIS
     Dosage: UNK, QD
     Route: 048
     Dates: start: 20130418, end: 20190606

REACTIONS (9)
  - Urinary retention [Recovered/Resolved]
  - White blood cell count decreased [Unknown]
  - Bronchitis [Recovered/Resolved]
  - Oral herpes [Unknown]
  - Headache [Unknown]
  - Blood alkaline phosphatase decreased [Unknown]
  - Lymphocyte count decreased [Recovering/Resolving]
  - Migraine [Unknown]
  - Asthenopia [Recovered/Resolved]

NARRATIVE: CASE EVENT DATE: 20130613
